FAERS Safety Report 19621285 (Version 1)
Quarter: 2021Q3

REPORT INFORMATION
  Report Type: Spontaneous
  Country: US (occurrence: US)
  Receive Date: 20210728
  Receipt Date: 20210728
  Transmission Date: 20211014
  Serious: Yes (Other)
  Sender: FDA-Public Use
  Company Number: US-GLAXOSMITHKLINE-US2021GSK158909

PATIENT
  Sex: Female

DRUGS (6)
  1. RANITIDINE CAPSULE [Suspect]
     Active Substance: RANITIDINE
     Indication: GASTRIC ULCER
     Dosage: UNK, OCCASIONAL
     Route: 065
     Dates: start: 200901, end: 201412
  2. ZANTAC [Suspect]
     Active Substance: RANITIDINE HYDROCHLORIDE
     Indication: GASTRIC ULCER
     Dosage: UNK
     Route: 065
     Dates: start: 200101, end: 200912
  3. RANITIDINE. [Suspect]
     Active Substance: RANITIDINE
     Dosage: UNK, OCCASIONAL
     Route: 065
     Dates: start: 200901, end: 201412
  4. RANITIDINE. [Suspect]
     Active Substance: RANITIDINE
     Indication: GASTRIC ULCER
     Dosage: UNK, OCCASIONAL
     Route: 065
     Dates: start: 200901, end: 201412
  5. ZANTAC [Suspect]
     Active Substance: RANITIDINE HYDROCHLORIDE
     Indication: GASTRIC ULCER
     Dosage: UNK
     Route: 065
     Dates: start: 200101, end: 200912
  6. RANITIDINE. [Suspect]
     Active Substance: RANITIDINE
     Indication: GASTRIC ULCER
     Dosage: UNK, OCCASIONAL
     Route: 065
     Dates: start: 200901, end: 201412

REACTIONS (1)
  - Breast cancer [Unknown]
